FAERS Safety Report 5956985-5 (Version None)
Quarter: 2008Q4

REPORT INFORMATION
  Report Type: 
  Country: None (occurrence: None)
  Receive Date: 20081117
  Receipt Date: 20081117
  Transmission Date: 20090506
  Serious: No
  Sender: FDA-Public Use
  Company Number: None

PATIENT
  Sex: Male
  Weight: 63.5036 kg

DRUGS (1)
  1. ZYPREXA [Suspect]
     Indication: BIPOLAR DISORDER
     Dosage: 15-20 MG. A DAY USUALLY ONCE PO
     Route: 048
     Dates: start: 20031230, end: 20080625

REACTIONS (8)
  - ASTHENIA [None]
  - CONVULSION [None]
  - COORDINATION ABNORMAL [None]
  - GAIT DISTURBANCE [None]
  - IMPAIRED WORK ABILITY [None]
  - MUSCLE SPASMS [None]
  - MUSCULAR WEAKNESS [None]
  - TARDIVE DYSKINESIA [None]
